FAERS Safety Report 15043518 (Version 4)
Quarter: 2019Q1

REPORT INFORMATION
  Report Type: Report from Study
  Country: US (occurrence: US)
  Receive Date: 20180621
  Receipt Date: 20190322
  Transmission Date: 20190417
  Serious: No
  Sender: FDA-Public Use
  Company Number: US-SA-2018SA163630

PATIENT
  Age: 61 Year
  Sex: Male

DRUGS (3)
  1. DUPILUMAB [Suspect]
     Active Substance: DUPILUMAB
     Indication: DERMATITIS ATOPIC
  2. FLOMAX RELIEF [Concomitant]
     Active Substance: TAMSULOSIN HYDROCHLORIDE
  3. DUPILUMAB [Suspect]
     Active Substance: DUPILUMAB
     Indication: ECZEMA
     Dosage: 300 MG, QOW
     Route: 058
     Dates: start: 20180202

REACTIONS (15)
  - Skin exfoliation [Recovered/Resolved]
  - Skin disorder [Unknown]
  - Micturition disorder [Recovering/Resolving]
  - Rash erythematous [Unknown]
  - Rash [Unknown]
  - Eye irritation [Recovered/Resolved]
  - Eye pruritus [Unknown]
  - Upper limb fracture [Unknown]
  - Condition aggravated [Recovered/Resolved]
  - Skin discolouration [Unknown]
  - Rash pruritic [Recovered/Resolved]
  - Lower limb fracture [Unknown]
  - Visual impairment [Recovering/Resolving]
  - Dermatitis atopic [Unknown]
  - Pruritus [Unknown]

NARRATIVE: CASE EVENT DATE: 201802
